FAERS Safety Report 12394332 (Version 2)
Quarter: 2017Q4

REPORT INFORMATION
  Report Type: Spontaneous
  Country: JP (occurrence: JP)
  Receive Date: 20160523
  Receipt Date: 20171222
  Transmission Date: 20180320
  Serious: Yes (Other)
  Sender: FDA-Public Use
  Company Number: JP-PFIZER INC-2016264469

PATIENT
  Age: 70 Year
  Sex: Female

DRUGS (3)
  1. SALAZOSULFAPYRIDINE [Concomitant]
     Active Substance: SULFASALAZINE
     Indication: RHEUMATOID ARTHRITIS
     Dosage: 1000 MG/DAY
     Dates: start: 201210
  2. MILNACIPRAN [Concomitant]
     Active Substance: MILNACIPRAN
     Indication: DEPRESSION
     Dosage: UNK
     Route: 048
  3. METHOTREXATE SODIUM. [Suspect]
     Active Substance: METHOTREXATE SODIUM
     Indication: RHEUMATOID ARTHRITIS
     Dosage: 4-10 MG/WEEK
     Dates: start: 201210

REACTIONS (2)
  - Diffuse large B-cell lymphoma [Recovered/Resolved]
  - Ileal perforation [Recovered/Resolved]
